FAERS Safety Report 16515886 (Version 2)
Quarter: 2019Q3

REPORT INFORMATION
  Report Type: Spontaneous
  Country: US (occurrence: US)
  Receive Date: 20190702
  Receipt Date: 20190722
  Transmission Date: 20191004
  Serious: No
  Sender: FDA-Public Use
  Company Number: US-PFIZER INC-2019271496

PATIENT
  Sex: Female

DRUGS (1)
  1. GABAPENTIN. [Suspect]
     Active Substance: GABAPENTIN
     Indication: FIBROMYALGIA
     Dosage: UNK
     Route: 048

REACTIONS (6)
  - Vertigo [Recovered/Resolved]
  - Product use in unapproved indication [Unknown]
  - Balance disorder [Recovered/Resolved]
  - Drug hypersensitivity [Unknown]
  - Off label use [Unknown]
  - Pharyngeal swelling [Unknown]
